FAERS Safety Report 6686020-5 (Version None)
Quarter: 2010Q2

REPORT INFORMATION
  Report Type: 
  Country: None (occurrence: None)
  Receive Date: 20100419
  Receipt Date: 20100319
  Transmission Date: 20101027
  Serious: No
  Sender: FDA-Public Use
  Company Number: US-BAYER-201013359BCC

PATIENT
  Sex: Female

DRUGS (1)
  1. DESONATE [Suspect]
     Indication: HYPERSENSITIVITY
     Route: 065
     Dates: start: 20100101

REACTIONS (1)
  - SKIN IRRITATION [None]
